FAERS Safety Report 7997431-X (Version None)
Quarter: 2011Q4

REPORT INFORMATION
  Report Type: 
  Country: None (occurrence: None)
  Receive Date: 20111221
  Receipt Date: 20111215
  Transmission Date: 20120403
  Serious: Yes (Death)
  Sender: FDA-Public Use
  Company Number: GB-ROCHE-GNE320438

PATIENT
  Sex: Female

DRUGS (11)
  1. LUCENTIS [Suspect]
     Indication: DETACHMENT OF RETINAL PIGMENT EPITHELIUM
     Dosage: UNK
     Route: 050
     Dates: start: 20080731
  2. NITROGLYCERIN [Concomitant]
  3. ISMN [Concomitant]
  4. SIMVASTATIN [Concomitant]
  5. METFORMIN HCL [Concomitant]
     Dates: start: 20110214
  6. GLICLAZIDE [Concomitant]
     Dates: start: 20110214
  7. INSULIN [Concomitant]
     Dates: start: 20110216
  8. XALATAN [Concomitant]
  9. SPIRONOLACTONE [Concomitant]
  10. DIGOXIN [Concomitant]
  11. BISOPROLOL FUMARATE [Concomitant]

REACTIONS (1)
  - RECTOSIGMOID CANCER [None]
